FAERS Safety Report 6617475-X (Version None)
Quarter: 2010Q1

REPORT INFORMATION
  Report Type: 
  Country: None (occurrence: None)
  Receive Date: 20100308
  Receipt Date: 20100301
  Transmission Date: 20100710
  Serious: Yes (Other)
  Sender: FDA-Public Use
  Company Number: US-JNJFOC-20100301045

PATIENT
  Sex: Male
  Weight: 92.99 kg

DRUGS (5)
  1. DURAGESIC-100 [Suspect]
     Indication: BACK PAIN
     Dosage: 100+100 UG/HR
     Route: 062
  2. DURAGESIC-100 [Suspect]
     Dosage: 100+100 UG/HR
     Route: 062
  3. PERCOCET [Concomitant]
     Indication: PAIN
     Dosage: 10/650MG
     Route: 048
  4. NEURONTIN [Concomitant]
     Indication: PAIN
     Route: 048
  5. BACLOFEN [Concomitant]
     Indication: PAIN
     Route: 048

REACTIONS (4)
  - DEPRESSION [None]
  - DRUG EFFECT DECREASED [None]
  - MOTOR DYSFUNCTION [None]
  - MUSCLE ATROPHY [None]
